FAERS Safety Report 5138945-X (Version None)
Quarter: 2006Q4

REPORT INFORMATION
  Report Type: 
  Country: None (occurrence: None)
  Receive Date: 20061030
  Receipt Date: 20060519
  Transmission Date: 20070319
  Serious: No
  Sender: FDA-Public Use
  Company Number: US-GLAXOSMITHKLINE-A0606342A

PATIENT
  Age: 75 Year
  Sex: Male

DRUGS (5)
  1. ADVAIR HFA [Suspect]
     Indication: BRONCHITIS
     Dosage: 1PUFF TWICE PER DAY
     Route: 055
     Dates: start: 20060301
  2. ASPIRIN [Concomitant]
  3. PAROXETINE HCL [Concomitant]
  4. DILANTIN [Concomitant]
  5. LASIX [Concomitant]

REACTIONS (5)
  - ASTHENIA [None]
  - DYSPNOEA [None]
  - MOOD ALTERED [None]
  - THERAPEUTIC RESPONSE UNEXPECTED [None]
  - TREMOR [None]
